FAERS Safety Report 6163686-X (Version None)
Quarter: 2009Q2

REPORT INFORMATION
  Report Type: 
  Country: None (occurrence: None)
  Receive Date: 20090414
  Receipt Date: 20090403
  Transmission Date: 20091009
  Serious: Yes (Life-Threatening, Hospitalization)
  Sender: FDA-Public Use
  Company Number: THYM-1000828

PATIENT
  Age: 34 Year
  Sex: Female

DRUGS (18)
  1. THYMOGLOBULIN [Suspect]
     Indication: STEM CELL TRANSPLANT
     Dosage: 1.5 MG/KG, QD, INTRAVENOUS
     Route: 042
     Dates: start: 20080616, end: 20080620
  2. TRIMETHOPRIM + SULFAMETHOXAZOLE [Suspect]
     Indication: DRUG USE FOR UNKNOWN INDICATION
  3. TOTAL LYMPHOID IRRADIATION (TOTAL LYMPHOID IRRADIATION) [Concomitant]
  4. ACYCLOVIR [Concomitant]
  5. CYCLOSPORINE [Concomitant]
  6. FOLIC ACID [Concomitant]
  7. HYDROZYZINE HCL (HYDROZYZINE HCL) [Concomitant]
  8. LISINOPRIL (LISINORPIL) [Concomitant]
  9. LORAZEPAM [Concomitant]
  10. METOPROLOL SUCCINATE [Concomitant]
  11. NITROGLYCERIN [Concomitant]
  12. OMEPRAZOLE [Concomitant]
  13. OXYCODONE HCL [Concomitant]
  14. PROCHLORPERAZINE (PROCHLORPERAZINE MALEATE) [Concomitant]
  15. URSODIOL [Concomitant]
  16. VORICONAZOLE (VORICONAZOLE) [Concomitant]
  17. ZOLPIDEM [Concomitant]
  18. ANTIBIOTICS (ANTIBIOTICS) [Concomitant]

REACTIONS (2)
  - NEUTROPENIA [None]
  - VIRAL UPPER RESPIRATORY TRACT INFECTION [None]
